FAERS Safety Report 7465154-1 (Version None)
Quarter: 2011Q2

REPORT INFORMATION
  Report Type: 
  Country: None (occurrence: None)
  Receive Date: 20110428
  Receipt Date: 20110413
  Transmission Date: 20111010
  Serious: Yes (Other)
  Sender: FDA-Public Use
  Company Number: AUR-APL-2011-01380

PATIENT
  Age: 77 Year
  Sex: Male

DRUGS (10)
  1. AMLODIPINE BESYLATE [Concomitant]
  2. KALIUM [Suspect]
  3. FUROSEMIDE [Concomitant]
  4. ALLOPURINOL [Concomitant]
  5. SPIRONOLACTONE [Concomitant]
  6. CARVEDILOL [Suspect]
  7. LISINOPRIL [Suspect]
  8. INDAPAMIDE [Concomitant]
  9. ACETYL SALICYLIC ACID USP BAT [Concomitant]
  10. LISOPRESS [Concomitant]

REACTIONS (8)
  - DYSPHONIA [None]
  - HYPOTENSION [None]
  - ASTHENIA [None]
  - HYPERKALAEMIA [None]
  - DYSPNOEA [None]
  - DRUG INTERACTION [None]
  - OEDEMA PERIPHERAL [None]
  - RENAL FAILURE [None]
